FAERS Safety Report 6457301-5 (Version None)
Quarter: 2009Q4

REPORT INFORMATION
  Report Type: 
  Country: None (occurrence: None)
  Receive Date: 20091125
  Receipt Date: 20091116
  Transmission Date: 20100525
  Serious: Yes (Life-Threatening, Other)
  Sender: FDA-Public Use
  Company Number: US-PFIZER INC-2009260489

PATIENT
  Sex: Female
  Weight: 79.093 kg

DRUGS (13)
  1. CHANTIX [Suspect]
     Indication: TOBACCO ABUSE
     Dosage: 0.5 MG, 3X/DAY
     Route: 048
     Dates: start: 20090213, end: 20090215
  2. CHANTIX [Suspect]
     Dosage: 0.5 MG, 2X/DAY
     Dates: start: 20090216, end: 20090218
  3. CHANTIX [Suspect]
     Dosage: 1 MG, 2X/DAY
     Dates: start: 20090219, end: 20090226
  4. ZOLOFT [Suspect]
  5. WARFARIN [Concomitant]
  6. CRESTOR [Concomitant]
  7. FLONASE [Concomitant]
  8. TOPROL-XL [Concomitant]
  9. ASPIRIN [Concomitant]
  10. REQUIP [Concomitant]
  11. ZITHROMAX [Concomitant]
  12. ALLEGRA [Concomitant]
  13. SPIRIVA [Concomitant]

REACTIONS (8)
  - ANGER [None]
  - INTENTIONAL OVERDOSE [None]
  - INTENTIONAL SELF-INJURY [None]
  - IRRITABILITY [None]
  - MENTAL DISORDER [None]
  - PERSONALITY CHANGE [None]
  - SUICIDE ATTEMPT [None]
  - VOMITING [None]
